FAERS Safety Report 18544876 (Version 5)
Quarter: 2022Q1

REPORT INFORMATION
  Report Type: Spontaneous
  Country: PL (occurrence: PL)
  Receive Date: 20201125
  Receipt Date: 20220105
  Transmission Date: 20220423
  Serious: Yes (Hospitalization, Other)
  Sender: FDA-Public Use
  Company Number: PL-ORION CORPORATION ORION PHARMA-TREX2020-2274

PATIENT
  Age: 62 Year
  Sex: Male

DRUGS (9)
  1. REMICADE [Suspect]
     Active Substance: INFLIXIMAB
     Indication: Psoriasis
     Dosage: 5 MG PER KG BODY WEIGHT, EVERY 2 WEEKS
     Route: 042
     Dates: start: 201708
  2. REMICADE [Suspect]
     Active Substance: INFLIXIMAB
     Indication: Psoriatic arthropathy
     Dosage: 5 MG PER KG BODY WEIGHT
     Route: 042
     Dates: start: 201803, end: 201906
  3. IXEKIZUMAB [Suspect]
     Active Substance: IXEKIZUMAB
     Indication: Psoriasis
     Route: 065
     Dates: start: 20190710, end: 201911
  4. IXEKIZUMAB [Suspect]
     Active Substance: IXEKIZUMAB
     Route: 065
     Dates: start: 201908
  5. METHOTREXATE [Suspect]
     Active Substance: METHOTREXATE
     Indication: Psoriasis
     Route: 065
  6. METHOTREXATE [Suspect]
     Active Substance: METHOTREXATE
     Indication: Psoriatic arthropathy
     Route: 065
     Dates: start: 201801
  7. METHOTREXATE [Suspect]
     Active Substance: METHOTREXATE
     Route: 065
     Dates: start: 201112
  8. METHOTREXATE [Suspect]
     Active Substance: METHOTREXATE
     Route: 065
     Dates: start: 201803
  9. METHOTREXATE [Suspect]
     Active Substance: METHOTREXATE
     Route: 065
     Dates: start: 201311, end: 201404

REACTIONS (18)
  - Prostate cancer [Unknown]
  - Cholangiocarcinoma [Unknown]
  - Hepatic cancer [Unknown]
  - Pulmonary fibrosis [Unknown]
  - Tonsillar inflammation [Unknown]
  - Onycholysis [Unknown]
  - Hepatic steatosis [Unknown]
  - Nail disorder [Unknown]
  - Splinter haemorrhages [Unknown]
  - Disease recurrence [Unknown]
  - Hepatic enzyme increased [Unknown]
  - Liver function test increased [Unknown]
  - Drug ineffective [Unknown]
  - Therapy non-responder [Unknown]
  - Psoriatic arthropathy [Not Recovered/Not Resolved]
  - Psoriasis [Unknown]
  - Tuberculin test positive [Unknown]
  - Drug ineffective [Unknown]

NARRATIVE: CASE EVENT DATE: 20140101
